FAERS Safety Report 4302473-1 (Version None)
Quarter: 2004Q1

REPORT INFORMATION
  Report Type: 
  Country: None (occurrence: None)
  Receive Date: 20040218
  Receipt Date: 20031211
  Transmission Date: 20041129
  Serious: Yes (Other)
  Sender: FDA-Public Use
  Company Number: 200318489US

PATIENT
  Age: 16 Year
  Sex: Male
  Weight: 84 kg

DRUGS (5)
  1. LANTUS [Suspect]
     Indication: DIABETES MELLITUS INSULIN-DEPENDENT
     Dosage: 30 TO 34 U HS INJ
     Route: 042
     Dates: start: 20020601
  2. LANTUS [Suspect]
     Indication: DIABETES MELLITUS INSULIN-DEPENDENT
     Dosage: 30 U HS INJ
     Route: 042
  3. HUMALOG [Concomitant]
  4. ISOPHANE INSULIN [Concomitant]
  5. INSULIN PORCINE (REGULAR INSULIN) [Concomitant]

REACTIONS (2)
  - HYPOGLYCAEMIA [None]
  - LOSS OF CONSCIOUSNESS [None]
